FAERS Safety Report 12769003 (Version 1)
Quarter: 2016Q3

REPORT INFORMATION
  Report Type: Spontaneous
  Country: US (occurrence: US)
  Receive Date: 20160921
  Receipt Date: 20160921
  Transmission Date: 20161109
  Serious: No
  Sender: FDA-Public Use
  Company Number: US-JAZZ-2016-US-010323

PATIENT
  Sex: Female

DRUGS (14)
  1. XYREM [Suspect]
     Active Substance: SODIUM OXYBATE
     Dosage: 3.75 G, BID
     Route: 048
     Dates: start: 2016
  2. LOPERAMIDE [Concomitant]
     Active Substance: LOPERAMIDE
  3. CALCIUM + VITAMIN D [Concomitant]
     Active Substance: CALCIUM\VITAMIN D
  4. CETIRIZINE HCL [Concomitant]
     Active Substance: CETIRIZINE HYDROCHLORIDE
  5. VITAMIN B COMPLEX [Concomitant]
     Active Substance: CYANOCOBALAMIN\DEXPANTHENOL\NIACINAMIDE\PYRIDOXINE HYDROCHLORIDE\RIBOFLAVIN 5^-PHOSPHATE SODIUM\THIAMINE HYDROCHLORIDE\VITAMIN B COMPLEX
  6. METHYLPHENIDATE. [Concomitant]
     Active Substance: METHYLPHENIDATE
  7. SERTRALINE HCL [Concomitant]
     Active Substance: SERTRALINE HYDROCHLORIDE
  8. FLONASE [Concomitant]
     Active Substance: FLUTICASONE PROPIONATE
  9. MAGNESIUM OXIDE. [Concomitant]
     Active Substance: MAGNESIUM OXIDE
  10. MIRENA [Concomitant]
     Active Substance: LEVONORGESTREL
  11. XYREM [Suspect]
     Active Substance: SODIUM OXYBATE
     Indication: NARCOLEPSY
     Dosage: 2.25 G, BID
     Route: 048
     Dates: start: 201603, end: 201603
  12. TURMERIC [Concomitant]
     Active Substance: TURMERIC
  13. XYREM [Suspect]
     Active Substance: SODIUM OXYBATE
     Dosage: DOSE ADJUSTMENTS
     Route: 048
     Dates: start: 201603, end: 2016
  14. ONDANSETRON HCL [Concomitant]
     Active Substance: ONDANSETRON HYDROCHLORIDE

REACTIONS (2)
  - Anxiety [Not Recovered/Not Resolved]
  - Gastric disorder [Not Recovered/Not Resolved]

NARRATIVE: CASE EVENT DATE: 2016
